FAERS Safety Report 7461500-3 (Version None)
Quarter: 2011Q2

REPORT INFORMATION
  Report Type: 
  Country: None (occurrence: None)
  Receive Date: 20110506
  Receipt Date: 20110503
  Transmission Date: 20111010
  Serious: Yes (Other)
  Sender: FDA-Public Use
  Company Number: US-PFIZER INC-2011039584

PATIENT
  Sex: Male

DRUGS (5)
  1. CHANTIX [Suspect]
     Indication: SMOKING CESSATION THERAPY
     Dosage: UNK
     Dates: start: 20090501, end: 20090501
  2. ALBUTEROL [Concomitant]
     Indication: CHRONIC OBSTRUCTIVE PULMONARY DISEASE
     Dosage: UNK
     Dates: start: 20080101
  3. NAPROXEN [Concomitant]
     Indication: ARTHRITIS
     Dosage: UNK
     Dates: start: 20080101
  4. MUCINEX [Concomitant]
     Indication: CHRONIC OBSTRUCTIVE PULMONARY DISEASE
     Dosage: UNK
     Dates: start: 20080101
  5. ACETAMINOPHEN [Concomitant]
     Indication: ARTHRITIS
     Dosage: UNK
     Dates: start: 20080101

REACTIONS (5)
  - NIGHTMARE [None]
  - SUICIDAL IDEATION [None]
  - DEPRESSION [None]
  - AGITATION [None]
  - ANXIETY [None]
